FAERS Safety Report 12987782 (Version 2)
Quarter: 2016Q4

REPORT INFORMATION
  Report Type: Report from Study
  Country: NL (occurrence: NL)
  Receive Date: 20161130
  Receipt Date: 20161206
  Transmission Date: 20170207
  Serious: Yes (Death, Other)
  Sender: FDA-Public Use
  Company Number: NL-AMGEN-NLDSL2016168098

PATIENT
  Age: 83 Year
  Sex: Male

DRUGS (3)
  1. XGEVA [Suspect]
     Active Substance: DENOSUMAB
     Dosage: UNK
     Route: 058
  2. XGEVA [Suspect]
     Active Substance: DENOSUMAB
     Indication: PROPHYLAXIS
     Dosage: 120 MG (1.70 ML), Q4WK
     Route: 058
  3. FENTANYL. [Concomitant]
     Active Substance: FENTANYL
     Dosage: 200 MCG (37.5 X 1 X ZO NODIG 4), UNK

REACTIONS (3)
  - Prostate cancer metastatic [Fatal]
  - Palliative care [Unknown]
  - Terminal state [Unknown]

NARRATIVE: CASE EVENT DATE: 20161112
